FAERS Safety Report 7371539-4 (Version None)
Quarter: 2011Q1

REPORT INFORMATION
  Report Type: 
  Country: None (occurrence: None)
  Receive Date: 20110324
  Receipt Date: 20110318
  Transmission Date: 20110831
  Serious: Yes (Other)
  Sender: FDA-Public Use
  Company Number: US-AMGEN-USASP2011015093

PATIENT
  Sex: Female

DRUGS (1)
  1. PROLIA [Suspect]
     Indication: OSTEOPOROSIS POSTMENOPAUSAL
     Dates: start: 20100907

REACTIONS (6)
  - EYELID EXFOLIATION [None]
  - ACTINIC KERATOSIS [None]
  - DERMATITIS [None]
  - DRY SKIN [None]
  - BASAL CELL CARCINOMA [None]
  - RASH [None]
